FAERS Safety Report 6190571-X (Version None)
Quarter: 2009Q2

REPORT INFORMATION
  Report Type: 
  Country: None (occurrence: None)
  Receive Date: 20090514
  Receipt Date: 20090506
  Transmission Date: 20091009
  Serious: Yes (Hospitalization)
  Sender: FDA-Public Use
  Company Number: US-GENENTECH-282627

PATIENT
  Age: 54 Year
  Sex: Female

DRUGS (4)
  1. BLINDED BEVACIZUMAB [Suspect]
     Indication: FALLOPIAN TUBE CANCER
     Dosage: 15 MG/KG, Q3W
     Route: 042
     Dates: start: 20081208
  2. BLINDED PLACEBO [Suspect]
     Indication: FALLOPIAN TUBE CANCER
     Dosage: 15 MG/KG, Q3W
     Route: 042
     Dates: start: 20081208
  3. PACLITAXEL [Concomitant]
     Indication: FALLOPIAN TUBE CANCER
     Dosage: 175 MG/M2, UNK
     Route: 042
     Dates: start: 20081208
  4. CARBOPLATIN [Concomitant]
     Indication: FALLOPIAN TUBE CANCER
     Dosage: 6 AUC, UNK
     Route: 042
     Dates: start: 20081208

REACTIONS (1)
  - HYDRONEPHROSIS [None]
